FAERS Safety Report 24051553 (Version 1)
Quarter: 2024Q3

REPORT INFORMATION
  Report Type: Spontaneous
  Country: CN (occurrence: CN)
  Receive Date: 20240704
  Receipt Date: 20240704
  Transmission Date: 20241016
  Serious: Yes (Life-Threatening)
  Sender: PFIZER
  Company Number: CN-PFIZER INC-PV202400086941

PATIENT
  Age: 4 Year
  Sex: Male
  Weight: 11.6 kg

DRUGS (4)
  1. CYTARABINE [Suspect]
     Active Substance: CYTARABINE
     Indication: Acute lymphocytic leukaemia
     Dosage: 0.04 G, 1X/DAY
     Route: 041
     Dates: start: 20240614, end: 20240617
  2. CYTARABINE [Suspect]
     Active Substance: CYTARABINE
     Dosage: 0.04 G, 1X/DAY
     Route: 041
     Dates: start: 20240621, end: 20240624
  3. DEXTROSE [Concomitant]
     Active Substance: DEXTROSE\DEXTROSE MONOHYDRATE
     Indication: Acute lymphocytic leukaemia
     Dosage: 100 ML, 1X/DAY
     Route: 041
     Dates: start: 20240614, end: 20240617
  4. DEXTROSE [Concomitant]
     Active Substance: DEXTROSE\DEXTROSE MONOHYDRATE
     Dosage: 100 ML, 1X/DAY
     Route: 041
     Dates: start: 20240621, end: 20240624

REACTIONS (7)
  - Myelosuppression [Recovering/Resolving]
  - Anaemia [Recovering/Resolving]
  - White blood cell count decreased [Recovering/Resolving]
  - Neutrophil count decreased [Recovering/Resolving]
  - Pyrexia [Recovered/Resolved]
  - Platelet count decreased [Recovering/Resolving]
  - Haemoglobin decreased [Recovering/Resolving]

NARRATIVE: CASE EVENT DATE: 20240616
